FAERS Safety Report 18264894 (Version 1)
Quarter: 2020Q3

REPORT INFORMATION
  Report Type: Spontaneous
  Country: KR (occurrence: KR)
  Receive Date: 20200914
  Receipt Date: 20200914
  Transmission Date: 20201103
  Serious: Yes (Death, Other)
  Sender: FDA-Public Use
  Company Number: KR-PFIZER INC-2020350271

PATIENT
  Age: 76 Year
  Sex: Male

DRUGS (49)
  1. XALKORI [Suspect]
     Active Substance: CRIZOTINIB
     Dosage: 250 MG, 2X/DAY
     Route: 048
     Dates: start: 20160112, end: 201601
  2. XANAX [Concomitant]
     Active Substance: ALPRAZOLAM
     Dosage: 0.5 MG, 1X/DAY
     Route: 048
     Dates: start: 20160126
  3. TANTUM [BENZYDAMINE HYDROCHLORIDE] [Concomitant]
     Dosage: 100 ML, 3X/DAY DRG
  4. MORPHINE SULFATE. [Concomitant]
     Active Substance: MORPHINE SULFATE
     Dosage: 5 MG, 1X/DAY, IVF
     Dates: start: 20151230
  5. ERDOS [Concomitant]
     Active Substance: ERDOSTEINE
     Dosage: 300 MG, 3X/DAY
     Dates: start: 20160907
  6. XALKORI [Suspect]
     Active Substance: CRIZOTINIB
     Dosage: 250 MG, 2X/DAY
     Route: 048
     Dates: start: 20151230
  7. MYPOL [CODEINE PHOSPHATE;IBUPROFEN;PARACETAMOL] [Concomitant]
     Dosage: 2 DF, 6X/DAY
     Route: 048
     Dates: start: 20160223
  8. MEGACE F [Concomitant]
     Dosage: 5 ML, 1X/DAY
     Route: 048
     Dates: start: 20160112
  9. TAMBOCOR [Concomitant]
     Active Substance: FLECAINIDE ACETATE
     Dosage: 75 MG, 2X/DAY
     Route: 048
     Dates: start: 20151230
  10. SALOFALK [MESALAZINE] [Concomitant]
     Active Substance: MESALAMINE
     Dosage: 250 MG, 1X/DAY
     Route: 048
     Dates: start: 20160112
  11. TARGIN [Concomitant]
     Active Substance: NALOXONE HYDROCHLORIDE\OXYCODONE HYDROCHLORIDE
     Dosage: 1 DF, 2X/DAY
     Route: 048
     Dates: start: 20160223
  12. FENTORA [Concomitant]
     Active Substance: FENTANYL CITRATE
     Dosage: 100 UG, 4X/DAY
     Route: 048
     Dates: start: 20160126
  13. XALKORI [Suspect]
     Active Substance: CRIZOTINIB
     Dosage: 250 MG, 2X/DAY
     Route: 048
     Dates: start: 20160323, end: 2016
  14. MYPOL [CODEINE PHOSPHATE;IBUPROFEN;PARACETAMOL] [Concomitant]
     Dosage: 2 DF, 3X/DAY (2 CAPSULES)
     Route: 048
     Dates: start: 20151230
  15. MYPOL [CODEINE PHOSPHATE;IBUPROFEN;PARACETAMOL] [Concomitant]
     Dosage: 2 DF, 6X/DAY
     Route: 048
     Dates: start: 20160112
  16. MEGACE F [Concomitant]
     Dosage: 5 ML, 1X/DAY
     Route: 048
     Dates: start: 20160126
  17. CURAN [Concomitant]
     Active Substance: RANITIDINE HYDROCHLORIDE
     Dosage: 150 MG, 2X/DAY
     Route: 048
     Dates: start: 20151230
  18. SALOFALK [MESALAZINE] [Concomitant]
     Active Substance: MESALAMINE
     Dosage: 250 MG, 1X/DAY
     Route: 048
     Dates: start: 20160126
  19. TARGIN [Concomitant]
     Active Substance: NALOXONE HYDROCHLORIDE\OXYCODONE HYDROCHLORIDE
     Dosage: 1 DF, 2X/DAY
     Route: 048
     Dates: start: 20160112
  20. TARGIN [Concomitant]
     Active Substance: NALOXONE HYDROCHLORIDE\OXYCODONE HYDROCHLORIDE
     Dosage: 1 DF, 2X/DAY
     Route: 048
     Dates: start: 20160216
  21. XANAX [Concomitant]
     Active Substance: ALPRAZOLAM
     Dosage: 0.5 MG, 1X/DAY
     Route: 048
     Dates: start: 20160112
  22. XANAX [Concomitant]
     Active Substance: ALPRAZOLAM
     Dosage: 0.5 MG, 1X/DAY
     Route: 048
     Dates: start: 20160223
  23. TAZOPERAN [Concomitant]
     Dosage: 4.5 G, 3X/DAY, IVF
     Dates: start: 20151230
  24. LIDOCAINE VISCOUS [Concomitant]
     Active Substance: LIDOCAINE HYDROCHLORIDE
     Dosage: 15 ML, 3X/DAY
     Route: 048
     Dates: start: 20160112
  25. TARGIN [Concomitant]
     Active Substance: NALOXONE HYDROCHLORIDE\OXYCODONE HYDROCHLORIDE
     Dosage: 1 DF, 2X/DAY
     Route: 048
     Dates: start: 20160126
  26. AVELOX [Concomitant]
     Active Substance: MOXIFLOXACIN HYDROCHLORIDE
     Dosage: 400 MG, 1X/DAY
     Route: 048
     Dates: start: 20160907
  27. XALKORI [Suspect]
     Active Substance: CRIZOTINIB
     Dosage: 250 MG, 2X/DAY
     Route: 048
     Dates: start: 20160223, end: 2016
  28. XALKORI [Suspect]
     Active Substance: CRIZOTINIB
     Dosage: 250 MG, 2X/DAY
     Route: 048
     Dates: start: 20160715, end: 2016
  29. DIGOSIN [Concomitant]
     Active Substance: DIGOXIN
     Dosage: 0.25 MG, 1X/DAY
     Route: 048
     Dates: start: 20151230
  30. MEGACE F [Concomitant]
     Dosage: 5 ML, 1X/DAY
     Route: 048
     Dates: start: 20151230
  31. LEVOTUSS [Concomitant]
     Active Substance: LEVODROPROPIZINE
     Dosage: 60 MG, 3X/DAY
     Route: 048
     Dates: start: 20151230
  32. XANAX [Concomitant]
     Active Substance: ALPRAZOLAM
     Dosage: 0.5 MG, 1X/DAY
     Route: 048
     Dates: start: 20160216
  33. WINUF PERI [Concomitant]
     Active Substance: AMINO ACIDS\DEXTROSE\ELECTROLYTES NOS\SOYBEAN OIL\VITAMINS
     Dosage: 1450 ML, 1X/DAY, IVF
     Dates: start: 20151230
  34. FESTAL PLUS [Concomitant]
     Active Substance: DIMETHICONE\PANCRELIPASE\URSODIOL
     Dosage: 1 DF, 3X/DAY
     Route: 048
     Dates: start: 20160216
  35. XALKORI [Suspect]
     Active Substance: CRIZOTINIB
     Dosage: 250 MG, 2X/DAY
     Route: 048
     Dates: start: 20160309, end: 201603
  36. MYPOL [CODEINE PHOSPHATE;IBUPROFEN;PARACETAMOL] [Concomitant]
     Dosage: 2 DF, 6X/DAY
     Route: 048
     Dates: start: 20160216
  37. NORPIN [NOREPINEPHRINE] [Concomitant]
     Dosage: 30 MG, 1X/DAY, IVF
     Dates: start: 20151230
  38. SALOFALK [MESALAZINE] [Concomitant]
     Active Substance: MESALAMINE
     Dosage: 250 MG, 1X/DAY
     Route: 048
     Dates: start: 20151230
  39. MORPHINE SULFATE. [Concomitant]
     Active Substance: MORPHINE SULFATE
     Dosage: 15 MG, 1X/DAY, IVF
     Dates: start: 20151230
  40. FESTAL PLUS [Concomitant]
     Active Substance: DIMETHICONE\PANCRELIPASE\URSODIOL
     Dosage: 1 DF, 3X/DAY
     Route: 048
     Dates: start: 20160223
  41. XALKORI [Suspect]
     Active Substance: CRIZOTINIB
     Dosage: 250 MG, 2X/DAY
     Route: 048
     Dates: start: 20160518, end: 2016
  42. MYPOL [CODEINE PHOSPHATE;IBUPROFEN;PARACETAMOL] [Concomitant]
     Dosage: 2 DF, 6X/DAY
     Route: 048
     Dates: start: 20160126
  43. LEVOTUSS [Concomitant]
     Active Substance: LEVODROPROPIZINE
     Dosage: 60 MG, 3X/DAY
     Route: 048
     Dates: start: 20160112
  44. XALKORI [Suspect]
     Active Substance: CRIZOTINIB
     Dosage: 250 MG, 2X/DAY
     Route: 048
     Dates: start: 20160126, end: 2016
  45. XALKORI [Suspect]
     Active Substance: CRIZOTINIB
     Dosage: 250 MG, 2X/DAY
     Route: 048
     Dates: start: 20160420, end: 2016
  46. XALKORI [Suspect]
     Active Substance: CRIZOTINIB
     Dosage: 250 MG, 2X/DAY
     Route: 048
     Dates: start: 20160907
  47. LEVOTUSS [Concomitant]
     Active Substance: LEVODROPROPIZINE
     Dosage: 60 MG, 3X/DAY
     Route: 048
     Dates: start: 20160126
  48. XANAX [Concomitant]
     Active Substance: ALPRAZOLAM
     Dosage: 0.5 MG, 1X/DAY
     Route: 048
     Dates: start: 20151230
  49. FENTORA [Concomitant]
     Active Substance: FENTANYL CITRATE
     Dosage: 100 UG, 4X/DAY
     Route: 048
     Dates: start: 20160112

REACTIONS (1)
  - Death [Fatal]
